FAERS Safety Report 13488233 (Version 8)
Quarter: 2019Q4

REPORT INFORMATION
  Report Type: Report from Study
  Country: US (occurrence: US)
  Receive Date: 20170426
  Receipt Date: 20191122
  Transmission Date: 20200122
  Serious: Yes (Hospitalization)
  Sender: FDA-Public Use
  Company Number: US-ACTELION-A-NJ2016-136901

PATIENT
  Age: 1 Year
  Sex: Male
  Weight: 12.25 kg

DRUGS (5)
  1. TRACLEER [Suspect]
     Active Substance: BOSENTAN
     Dosage: 25 MG, BID
     Route: 048
  2. OXYGEN. [Concomitant]
     Active Substance: OXYGEN
  3. TRACLEER [Suspect]
     Active Substance: BOSENTAN
     Indication: PULMONARY HYPERTENSION
     Dosage: 62.5 MG, BID
     Route: 048
     Dates: start: 20160318
  4. TRACLEER [Suspect]
     Active Substance: BOSENTAN
     Dosage: 31.25 MG, BID
     Route: 048
  5. SILDENAFIL. [Concomitant]
     Active Substance: SILDENAFIL

REACTIONS (14)
  - Tracheostomy malfunction [Unknown]
  - Malaise [Unknown]
  - Brain injury [Unknown]
  - Aspartate aminotransferase increased [Unknown]
  - Vomiting [Unknown]
  - Hernia diaphragmatic repair [Recovering/Resolving]
  - Intestinal adhesion lysis [Recovering/Resolving]
  - Repair of imperforate rectum [Recovering/Resolving]
  - Intestinal resection [Unknown]
  - Alanine aminotransferase increased [Unknown]
  - Respiratory distress [Unknown]
  - Liver function test abnormal [Unknown]
  - Pneumonia respiratory syncytial viral [Unknown]
  - Medical procedure [Unknown]

NARRATIVE: CASE EVENT DATE: 20160404
